FAERS Safety Report 24260974 (Version 1)
Quarter: 2024Q3

REPORT INFORMATION
  Report Type: Spontaneous
  Country: US (occurrence: None)
  Receive Date: 20240829
  Receipt Date: 20240829
  Transmission Date: 20241017
  Serious: No
  Sender: ASTRAZENECA
  Company Number: 2024A183734

PATIENT
  Age: 70 Year
  Sex: Male

DRUGS (2)
  1. BREZTRI [Suspect]
     Active Substance: BUDESONIDE\FORMOTEROL\GLYCOPYRROLATE
     Indication: Emphysema
     Route: 055
  2. BEVESPI AEROSPHERE [Suspect]
     Active Substance: FORMOTEROL FUMARATE\GLYCOPYRROLATE
     Route: 055

REACTIONS (7)
  - Emphysema [Unknown]
  - Feeling abnormal [Unknown]
  - Dizziness [Unknown]
  - Pharyngeal swelling [Unknown]
  - Urinary tract disorder [Unknown]
  - Prostatomegaly [Unknown]
  - Heavy exposure to ultraviolet light [Unknown]
